FAERS Safety Report 25940854 (Version 1)
Quarter: 2025Q4

REPORT INFORMATION
  Report Type: Spontaneous
  Country: EU (occurrence: EU)
  Receive Date: 20251020
  Receipt Date: 20251020
  Transmission Date: 20260118
  Serious: Yes (Hospitalization, Other)
  Sender: FRESENIUS KABI
  Company Number: EU-FreseniusKabi-FK202514128

PATIENT
  Sex: Male

DRUGS (8)
  1. LINEZOLID [Suspect]
     Active Substance: LINEZOLID
     Indication: Cellulitis streptococcal
     Route: 042
  2. LINEZOLID [Suspect]
     Active Substance: LINEZOLID
     Dosage: SECOND DOSE
  3. CLINDAMYCIN [Concomitant]
     Active Substance: CLINDAMYCIN
     Indication: Cellulitis streptococcal
     Dosage: 600MG EVERY 8 HOURS
  4. BECLOMETHASONE DIPROPIONATE [Concomitant]
     Active Substance: BECLOMETHASONE DIPROPIONATE
     Indication: Symptomatic treatment
     Route: 055
  5. FORMOTEROL [Concomitant]
     Active Substance: FORMOTEROL
     Indication: Symptomatic treatment
     Route: 055
  6. TIOTROPIUM [Concomitant]
     Active Substance: TIOTROPIUM
     Indication: Symptomatic treatment
     Route: 055
  7. ALBUTEROL [Concomitant]
     Active Substance: ALBUTEROL
     Indication: Symptomatic treatment
     Route: 055
  8. 4g piperacillin/0.5g tazobactam [Concomitant]
     Indication: Anti-infective therapy
     Dosage: 4G PIPERACILLIN/0.5G TAZOBACTAM GIVEN EVERY 6HOURS AS INITIAL ANTIMICROBIAL THERAPY

REACTIONS (2)
  - Angioedema [Recovered/Resolved]
  - Hyperaemia [Unknown]
